FAERS Safety Report 14310482 (Version 1)
Quarter: 2017Q4

REPORT INFORMATION
  Report Type: Spontaneous
  Country: US (occurrence: US)
  Receive Date: 20171220
  Receipt Date: 20171220
  Transmission Date: 20180321
  Serious: Yes (Other)
  Sender: FDA-Public Use
  Company Number: None

PATIENT
  Age: 44 Year
  Sex: Female
  Weight: 72 kg

DRUGS (5)
  1. AVIANE 28 DAY [Suspect]
     Active Substance: ETHINYL ESTRADIOL\LEVONORGESTREL
     Indication: CONTRACEPTION
     Dosage: ?          OTHER STRENGTH:1;QUANTITY:1 TABLET(S);?
     Route: 048
     Dates: start: 20170728, end: 20171028
  2. LUTERA [Concomitant]
     Active Substance: ETHINYL ESTRADIOL\LEVONORGESTREL
  3. DAILY MULTIVITAMIN [Concomitant]
     Active Substance: VITAMINS
  4. SERTRALINE [Concomitant]
     Active Substance: SERTRALINE HYDROCHLORIDE
  5. AVIANE 28 DAY [Suspect]
     Active Substance: ETHINYL ESTRADIOL\LEVONORGESTREL
     Indication: MENSTRUATION IRREGULAR
     Dosage: ?          OTHER STRENGTH:1;QUANTITY:1 TABLET(S);?
     Route: 048
     Dates: start: 20170728, end: 20171028

REACTIONS (4)
  - Menstruation irregular [None]
  - Product substitution issue [None]
  - Migraine [None]
  - Central nervous system lesion [None]

NARRATIVE: CASE EVENT DATE: 20170818
